FAERS Safety Report 7002364-1 (Version None)
Quarter: 2010Q3

REPORT INFORMATION
  Report Type: 
  Country: None (occurrence: None)
  Receive Date: 20100920
  Receipt Date: 20100309
  Transmission Date: 20110219
  Serious: No
  Sender: FDA-Public Use
  Company Number: US-ASTRAZENECA-2010SE10470

PATIENT
  Age: 16 Year
  Sex: Female

DRUGS (2)
  1. SEROQUEL XR [Suspect]
     Route: 048
     Dates: start: 20091201
  2. WELLBUTRIN [Concomitant]

REACTIONS (1)
  - MENOMETRORRHAGIA [None]
